FAERS Safety Report 5860027-X (Version None)
Quarter: 2008Q3

REPORT INFORMATION
  Report Type: 
  Country: None (occurrence: None)
  Receive Date: 20080827
  Receipt Date: 20080820
  Transmission Date: 20090109
  Serious: Yes (Life-Threatening, Hospitalization)
  Sender: FDA-Public Use
  Company Number: JP-PFIZER INC-2008063518

PATIENT
  Sex: Male
  Weight: 45.2 kg

DRUGS (7)
  1. LIPITOR [Suspect]
     Indication: POSTOPERATIVE CARE
     Dosage: DAILY DOSE:5MG
     Route: 048
     Dates: start: 20080619, end: 20080624
  2. VANCOMYCIN HYDROCHLORIDE [Suspect]
     Indication: POSTOPERATIVE WOUND INFECTION
     Route: 042
     Dates: start: 20080619, end: 20080625
  3. DILTIAZEM HYDROCHLORIDE [Concomitant]
     Route: 048
     Dates: start: 20080614, end: 20080615
  4. ASPIRIN [Concomitant]
     Indication: ANGINA PECTORIS
     Route: 048
     Dates: start: 20080611, end: 20080620
  5. SIGMART [Concomitant]
     Indication: ANGINA PECTORIS
     Route: 048
  6. PANALDINE [Concomitant]
     Indication: POSTOPERATIVE CARE
     Route: 048
     Dates: start: 20080614, end: 20080620
  7. WARFARIN SODIUM [Concomitant]
     Indication: POSTOPERATIVE CARE
     Route: 048
     Dates: start: 20080619, end: 20080619

REACTIONS (4)
  - PAIN IN EXTREMITY [None]
  - RENAL IMPAIRMENT [None]
  - RHABDOMYOLYSIS [None]
  - SURGERY [None]
